FAERS Safety Report 9553257 (Version 1)
Quarter: 2013Q3

REPORT INFORMATION
  Report Type: Spontaneous
  Country: US (occurrence: None)
  Receive Date: 20130805
  Receipt Date: 20130805
  Transmission Date: 20140515
  Serious: Yes (Other)
  Sender: FDA-Public Use
  Company Number: CERZ-1002550

PATIENT
  Sex: Female
  Weight: 56.7 kg

DRUGS (3)
  1. CEREZYME [Suspect]
     Indication: GAUCHER^S DISEASE
     Dosage: 60 U/KG, Q2W, INTRAVENOUS
     Route: 042
  2. BENADRYL (DIPHENHYRAMINE) [Concomitant]
  3. TYLENOL (PARACETAMOL) [Concomitant]

REACTIONS (4)
  - Rash [None]
  - Cough [None]
  - Chest discomfort [None]
  - Throat tightness [None]
